FAERS Safety Report 20093798 (Version 1)
Quarter: 2021Q4

REPORT INFORMATION
  Report Type: Spontaneous
  Country: US (occurrence: None)
  Receive Date: 20211119
  Receipt Date: 20211119
  Transmission Date: 20220303
  Serious: No
  Sender: FDA-Public Use
  Company Number: None

PATIENT
  Age: 79 Year
  Sex: Male

DRUGS (3)
  1. EVEROLIMUS [Suspect]
     Active Substance: EVEROLIMUS
     Indication: Rectal cancer
     Dosage: FREQUENCY : DAILY;?
     Route: 048
     Dates: start: 20211108
  2. COUMADIN [Concomitant]
     Active Substance: WARFARIN SODIUM
  3. pravatatin pantaprozole [Concomitant]

REACTIONS (1)
  - Haemorrhage [None]

NARRATIVE: CASE EVENT DATE: 20211118
